FAERS Safety Report 16533928 (Version 1)
Quarter: 2019Q3

REPORT INFORMATION
  Report Type: Report from Study
  Country: None (occurrence: BR)
  Receive Date: 20190704
  Receipt Date: 20190704
  Transmission Date: 20191004
  Serious: Yes (Hospitalization, Other)
  Sender: FDA-Public Use
  Company Number: BR-ABBVIE-19K-020-2837660-00

PATIENT
  Age: 28 Year
  Sex: Female

DRUGS (1)
  1. HUMIRA [Suspect]
     Active Substance: ADALIMUMAB
     Indication: RHEUMATOID ARTHRITIS
     Route: 058
     Dates: start: 20190319, end: 2019

REACTIONS (6)
  - Nausea [Unknown]
  - Liver disorder [Recovered/Resolved]
  - Malaise [Unknown]
  - Malaise [Unknown]
  - Hepatotoxicity [Unknown]
  - Pain [Unknown]

NARRATIVE: CASE EVENT DATE: 2019
